FAERS Safety Report 17970092 (Version 1)
Quarter: 2020Q3

REPORT INFORMATION
  Report Type: Spontaneous
  Country: FR (occurrence: FR)
  Receive Date: 20200701
  Receipt Date: 20200701
  Transmission Date: 20201103
  Serious: Yes (Hospitalization)
  Sender: FDA-Public Use
  Company Number: NVSC2020FR184170

PATIENT
  Age: 62 Year
  Sex: Female

DRUGS (2)
  1. GLIVEC [Concomitant]
     Active Substance: IMATINIB MESYLATE
     Indication: CHEMOTHERAPY
     Dosage: 600 MG, QD
     Route: 048
     Dates: start: 20190215, end: 20200406
  2. VOTRIENT [Suspect]
     Active Substance: PAZOPANIB HYDROCHLORIDE
     Indication: CHEMOTHERAPY
     Dosage: 2 DF, QD
     Route: 048
     Dates: start: 20200407, end: 20200422

REACTIONS (4)
  - Nausea [Recovered/Resolved]
  - Ischaemic stroke [Recovered/Resolved with Sequelae]
  - Mucosal inflammation [Recovering/Resolving]
  - Headache [Recovered/Resolved]

NARRATIVE: CASE EVENT DATE: 202004
